FAERS Safety Report 10692157 (Version 4)
Quarter: 2015Q4

REPORT INFORMATION
  Report Type: Report from Study
  Country: US (occurrence: US)
  Receive Date: 20150106
  Receipt Date: 20151218
  Transmission Date: 20160304
  Serious: No
  Sender: FDA-Public Use
  Company Number: US-AMGEN INC.-USASL2014102275

PATIENT
  Age: 59 Year
  Sex: Female
  Weight: 75.28 kg

DRUGS (1)
  1. ENBREL [Suspect]
     Active Substance: ETANERCEPT
     Indication: PSORIATIC ARTHROPATHY
     Dosage: 50 MG, UNK
     Route: 058
     Dates: start: 20140401, end: 201408

REACTIONS (11)
  - Sinusitis [Recovered/Resolved]
  - Nasopharyngitis [Unknown]
  - Rhinorrhoea [Not Recovered/Not Resolved]
  - Arthralgia [Recovered/Resolved]
  - Mobility decreased [Recovered/Resolved]
  - Drug hypersensitivity [Recovered/Resolved]
  - Rash generalised [Recovered/Resolved]
  - Urticaria [Unknown]
  - Eye disorder [Recovered/Resolved]
  - Eye infection [Recovered/Resolved]
  - Therapeutic response decreased [Recovered/Resolved]

NARRATIVE: CASE EVENT DATE: 2014
